FAERS Safety Report 4602768-8 (Version None)
Quarter: 2005Q1

REPORT INFORMATION
  Report Type: 
  Country: None (occurrence: None)
  Receive Date: 20050309
  Receipt Date: 20050225
  Transmission Date: 20050727
  Serious: Yes (Death)
  Sender: FDA-Public Use
  Company Number: US-JNJFOC-20050300197

PATIENT
  Sex: Female
  Weight: 147.42 kg

DRUGS (2)
  1. ORTHO EVRA [Suspect]
     Indication: ENDOMETRIOSIS
     Route: 062
  2. ATENOLOL [Concomitant]

REACTIONS (1)
  - PULMONARY EMBOLISM [None]
